FAERS Safety Report 15012592 (Version 1)
Quarter: 2018Q2

REPORT INFORMATION
  Report Type: Spontaneous
  Country: US (occurrence: US)
  Receive Date: 20180522
  Receipt Date: 20180522
  Transmission Date: 20180711
  Serious: Yes (Disabling)
  Sender: FDA-Public Use
  Company Number: None

PATIENT

DRUGS (7)
  1. TIMOLOL. [Concomitant]
     Active Substance: TIMOLOL
  2. FLUOXETINE [Concomitant]
     Active Substance: FLUOXETINE HYDROCHLORIDE
  3. CENTRUM SILVER [Concomitant]
     Active Substance: MINERALS\VITAMINS
  4. TYLENOL [Concomitant]
     Active Substance: ACETAMINOPHEN
  5. OCUVITE [Concomitant]
     Active Substance: VITAMINS
  6. CIPROFLOXACIN. [Suspect]
     Active Substance: CIPROFLOXACIN
     Indication: URINARY TRACT INFECTION
     Dosage: ?          QUANTITY:1 DF DOSAGE FORM;?
     Route: 048
     Dates: end: 20150413
  7. ELIQUIS [Concomitant]
     Active Substance: APIXABAN

REACTIONS (5)
  - Tendon rupture [None]
  - Foot deformity [None]
  - Musculoskeletal pain [None]
  - Contusion [None]
  - Skin mass [None]

NARRATIVE: CASE EVENT DATE: 200903
